FAERS Safety Report 4535221-0 (Version None)
Quarter: 2004Q4

REPORT INFORMATION
  Report Type: 
  Country: None (occurrence: None)
  Receive Date: 20041214
  Receipt Date: 20040831
  Transmission Date: 20050328
  Serious: Yes (Life-Threatening, Other)
  Sender: FDA-Public Use
  Company Number: 2004229261US

PATIENT

DRUGS (6)
  1. BEXTRA [Suspect]
     Indication: BACK PAIN
     Dosage: 20MG - 40MG
  2. ACTOS [Concomitant]
  3. METFORMIN HCL [Concomitant]
  4. INSULIN [Concomitant]
  5. AVAPRO [Concomitant]
  6. DOXAZOSIN MESYLATE [Concomitant]

REACTIONS (1)
  - CARDIAC FAILURE CONGESTIVE [None]
